FAERS Safety Report 5012778-7 (Version None)
Quarter: 2006Q2

REPORT INFORMATION
  Report Type: 
  Country: None (occurrence: None)
  Receive Date: 20060530
  Receipt Date: 20060223
  Transmission Date: 20061013
  Serious: No
  Sender: FDA-Public Use
  Company Number: US-BRISTOL-MYERS SQUIBB COMPANY-13294392

PATIENT
  Age: 65 Year
  Sex: Female

DRUGS (4)
  1. ERBITUX [Suspect]
     Indication: COLORECTAL CANCER METASTATIC
     Route: 042
     Dates: start: 20060222, end: 20060222
  2. OXALIPLATIN [Concomitant]
     Indication: COLORECTAL CANCER METASTATIC
     Dates: start: 20060222, end: 20060222
  3. FLUOROURACIL [Concomitant]
     Indication: COLORECTAL CANCER METASTATIC
     Dates: start: 20060222, end: 20060222
  4. LEUCOVORIN [Concomitant]
     Indication: COLORECTAL CANCER METASTATIC
     Dates: start: 20060222, end: 20060222

REACTIONS (1)
  - BLOOD PRESSURE DECREASED [None]
